FAERS Safety Report 6200265-X (Version None)
Quarter: 2009Q2

REPORT INFORMATION
  Report Type: 
  Country: None (occurrence: None)
  Receive Date: 20090522
  Receipt Date: 20070913
  Transmission Date: 20091009
  Serious: No
  Sender: FDA-Public Use
  Company Number: US-ALEXION-A200700017

PATIENT
  Sex: Female
  Weight: 71.202 kg

DRUGS (17)
  1. SOLIRIS [Suspect]
     Indication: PAROXYSMAL NOCTURNAL HAEMOGLOBINURIA
     Dosage: UNK, SINGLE
     Dates: start: 20070425, end: 20070425
  2. SOLIRIS [Suspect]
     Dosage: UNK, SINGLE
     Dates: start: 20070502, end: 20070502
  3. SOLIRIS [Suspect]
     Dosage: UNK, SINGLE
     Dates: start: 20070509, end: 20070509
  4. SOLIRIS [Suspect]
     Dosage: UNK, SINGLE
     Dates: start: 20070516, end: 20070516
  5. SOLIRIS [Suspect]
     Dosage: UNK, SINGLE
     Dates: start: 20070523, end: 20070523
  6. SOLIRIS [Suspect]
     Dosage: UNK, SINGLE
     Dates: start: 20070506, end: 20070506
  7. SOLIRIS [Suspect]
     Dosage: UNK, SINGLE
     Dates: start: 20070620, end: 20070620
  8. SOLIRIS [Suspect]
     Dosage: 900 MG, SINGLE
     Route: 042
     Dates: start: 20070814, end: 20070814
  9. SYNTHROID [Concomitant]
     Indication: HYPOTHYROIDISM
     Route: 048
  10. PROTONIX /01263201/ [Concomitant]
     Route: 048
  11. ATENOLOL [Concomitant]
     Indication: HYPERTENSION
     Route: 048
  12. FOLIC ACID [Concomitant]
     Indication: PAROXYSMAL NOCTURNAL HAEMOGLOBINURIA
     Route: 048
  13. VITAMIN E /00110501/ [Concomitant]
     Route: 048
  14. COUMADIN [Concomitant]
     Indication: THROMBOSIS PROPHYLAXIS
     Dosage: UNK, QD
     Route: 048
  15. LORATADINE [Concomitant]
     Indication: HYPERSENSITIVITY
     Dosage: UNK, QD
     Route: 048
  16. UNSPECIFIED STEROIDS [Concomitant]
     Indication: PAROXYSMAL NOCTURNAL HAEMOGLOBINURIA
     Dosage: 200 MG, QOD
  17. UNSPECIFIED STEROIDS [Concomitant]
     Dosage: 200 MG, BID QOD

REACTIONS (5)
  - FATIGUE [None]
  - NAUSEA [None]
  - RHINORRHOEA [None]
  - THROMBOCYTOPENIA [None]
  - VOMITING [None]
